FAERS Safety Report 16517425 (Version 1)
Quarter: 2019Q3

REPORT INFORMATION
  Report Type: Spontaneous
  Country: US (occurrence: US)
  Receive Date: 20190702
  Receipt Date: 20190702
  Transmission Date: 20191004
  Serious: No
  Sender: FDA-Public Use
  Company Number: US-GALDERMA-US18041136

PATIENT
  Age: 86 Year
  Sex: Female

DRUGS (4)
  1. DIFFERIN GEL [Suspect]
     Active Substance: ADAPALENE
     Indication: SKIN PAPILLOMA
     Dosage: 0.1%
     Route: 061
     Dates: start: 201808, end: 201809
  2. WARFARIN [Concomitant]
     Active Substance: WARFARIN
  3. LEVOTHYROXIN [Concomitant]
     Active Substance: LEVOTHYROXINE
  4. COMPOUND W [Concomitant]
     Active Substance: SALICYLIC ACID

REACTIONS (3)
  - Product use in unapproved indication [Recovered/Resolved]
  - Skin papilloma [Recovered/Resolved]
  - Rash [Recovered/Resolved]

NARRATIVE: CASE EVENT DATE: 201808
